FAERS Safety Report 9868383 (Version 1)
Quarter: 2014Q1

REPORT INFORMATION
  Report Type: Spontaneous
  Country: TR (occurrence: TR)
  Receive Date: 20140204
  Receipt Date: 20140204
  Transmission Date: 20141002
  Serious: Yes (Other)
  Sender: FDA-Public Use
  Company Number: TR-MYLANLABS-2014S1001784

PATIENT
  Age: 32 Year
  Sex: Female

DRUGS (7)
  1. OCTOCAINE WITH EPINEPHRINE [Suspect]
     Indication: EPIDURAL TEST DOSE
     Dosage: 2% LIDOCAINE, 5MICROG EPINEPHRINE
     Route: 008
  2. MARCAINE /00330101/ [Suspect]
     Indication: LABOUR PAIN
     Dosage: 12ML OF 0.125% ISOBARIC BUPIVACAINE (BOLUS); THEN 20ML OF 0.0625% INFUSION
     Route: 008
  3. MARCAINE /00330101/ [Suspect]
     Indication: LABOUR PAIN
     Dosage: 20ML OF 0.0625% ISOBARIC BUPIVACAINE INFUSION AT 7 ML/S
     Route: 008
  4. FENTANYL [Suspect]
     Indication: LABOUR PAIN
     Dosage: 50MICROG BOLUS; THEN 50MICROG IN 1ML INFUSION
     Route: 008
  5. FENTANYL [Suspect]
     Indication: LABOUR PAIN
     Dosage: 50MICROG IN 1ML INFUSION AT 7ML/S
     Route: 008
  6. ISOSOL [Concomitant]
     Indication: INFECTION PROPHYLAXIS
     Dosage: 10%
     Route: 061
  7. LIDOCAINE [Concomitant]
     Indication: INFILTRATION ANAESTHESIA
     Dosage: IN 3ML
     Route: 024

REACTIONS (2)
  - Horner^s syndrome [Recovered/Resolved]
  - Maternal exposure during delivery [Recovered/Resolved]
